FAERS Safety Report 4380729-4 (Version None)
Quarter: 2004Q2

REPORT INFORMATION
  Report Type: 
  Country: None (occurrence: None)
  Receive Date: 20040618
  Receipt Date: 20040421
  Transmission Date: 20050107
  Serious: Yes (Other)
  Sender: FDA-Public Use
  Company Number: PHEH2004US04514

PATIENT
  Sex: Female

DRUGS (3)
  1. LOTREL [Suspect]
  2. ADVIL [Suspect]
  3. ASPIRIN [Suspect]

REACTIONS (2)
  - GASTRIC ULCER [None]
  - STRESS SYMPTOMS [None]
